FAERS Safety Report 25088848 (Version 1)
Quarter: 2025Q1

REPORT INFORMATION
  Report Type: Spontaneous
  Country: US (occurrence: US)
  Receive Date: 20250318
  Receipt Date: 20250318
  Transmission Date: 20250408
  Serious: Yes (Death, Other)
  Sender: HIKMA
  Company Number: US-HIKMA PHARMACEUTICALS-US-H14001-25-02298

PATIENT
  Age: 40 Year
  Sex: Male

DRUGS (3)
  1. FENTANYL [Suspect]
     Active Substance: FENTANYL
     Indication: Product used for unknown indication
     Route: 065
  2. METHAMPHETAMINE [Suspect]
     Active Substance: METHAMPHETAMINE
     Indication: Product used for unknown indication
     Route: 065
  3. OXYCODONE [Suspect]
     Active Substance: OXYCODONE
     Indication: Product used for unknown indication
     Route: 065

REACTIONS (11)
  - Head injury [Unknown]
  - Headache [Unknown]
  - Musculoskeletal chest pain [Unknown]
  - Meningitis [Unknown]
  - CNS ventriculitis [Unknown]
  - Streptococcus test positive [Unknown]
  - Sepsis [Unknown]
  - Brain oedema [Unknown]
  - Hypoxic-ischaemic encephalopathy [Unknown]
  - Cerebral thrombosis [Unknown]
  - Toxicity to various agents [Fatal]
